FAERS Safety Report 6670723-2 (Version None)
Quarter: 2010Q2

REPORT INFORMATION
  Report Type: 
  Country: None (occurrence: None)
  Receive Date: 20100405
  Receipt Date: 20100318
  Transmission Date: 20101027
  Serious: Yes (Hospitalization)
  Sender: FDA-Public Use
  Company Number: 2010000933

PATIENT
  Sex: Female
  Weight: 98.6 kg

DRUGS (2)
  1. ERLOTINIB (ERLOTINIB) (TABLET) (ERLOTINIB) [Suspect]
     Indication: ADENOCARCINOMA PANCREAS
     Dosage: (100 MG, QD), ORAL
     Route: 048
     Dates: start: 20100125, end: 20100308
  2. GEMCITABINE [Suspect]
     Indication: ADENOCARCINOMA PANCREAS
     Dosage: (100 MG, QD), ORAL; (1000 MG/M2, DAYS 1, 8, 15) INTRAVENOUS
     Route: 048
     Dates: start: 20100125, end: 20100301

REACTIONS (13)
  - COMPUTERISED TOMOGRAM ABNORMAL [None]
  - DECREASED APPETITE [None]
  - DEHYDRATION [None]
  - DIARRHOEA [None]
  - FATIGUE [None]
  - HAEMOGLOBIN DECREASED [None]
  - HYPOTENSION [None]
  - LIVER DISORDER [None]
  - LYMPHADENOPATHY [None]
  - MALIGNANT NEOPLASM PROGRESSION [None]
  - PANCREATIC CARCINOMA METASTATIC [None]
  - PELVIC FLUID COLLECTION [None]
  - WEIGHT DECREASED [None]
